FAERS Safety Report 17441800 (Version 3)
Quarter: 2020Q1

REPORT INFORMATION
  Report Type: Spontaneous
  Country: JP (occurrence: JP)
  Receive Date: 20200220
  Receipt Date: 20200320
  Transmission Date: 20200409
  Serious: Yes (Hospitalization)
  Sender: FDA-Public Use
  Company Number: JP-ABBVIE-20K-087-3272352-00

PATIENT
  Sex: Female

DRUGS (1)
  1. IMBRUVICA [Suspect]
     Active Substance: IBRUTINIB
     Indication: MANTLE CELL LYMPHOMA
     Route: 048
     Dates: start: 20180820, end: 20200203

REACTIONS (2)
  - Pneumonia [Recovered/Resolved]
  - Muscle abscess [Recovered/Resolved]

NARRATIVE: CASE EVENT DATE: 20200124
